FAERS Safety Report 7653297-9 (Version None)
Quarter: 2011Q3

REPORT INFORMATION
  Report Type: 
  Country: None (occurrence: None)
  Receive Date: 20110803
  Receipt Date: 20110720
  Transmission Date: 20111222
  Serious: Yes (Other)
  Sender: FDA-Public Use
  Company Number: US-ELI_LILLY_AND_COMPANY-US201102004422

PATIENT
  Sex: Female

DRUGS (4)
  1. FORTEO [Suspect]
     Dosage: 20 UG, DAILY (1/D)
  2. FORTEO [Suspect]
     Indication: OSTEOPOROSIS
     Dosage: 20 UG, DAILY (1/D)
     Dates: start: 20110128
  3. FORTEO [Suspect]
     Dosage: 20 UG, QD
     Route: 065
  4. FORTEO [Suspect]
     Dosage: 20 UG, QD
     Route: 065

REACTIONS (18)
  - ARTHRALGIA [None]
  - RASH MACULAR [None]
  - FALL [None]
  - NERVE COMPRESSION [None]
  - INTESTINAL OBSTRUCTION [None]
  - PRURITUS [None]
  - PAIN IN EXTREMITY [None]
  - BALANCE DISORDER [None]
  - CHEST PAIN [None]
  - ARTHROPATHY [None]
  - DYSKINESIA [None]
  - RASH [None]
  - PAIN [None]
  - GAIT DISTURBANCE [None]
  - MYALGIA [None]
  - DYSPNOEA [None]
  - CONTUSION [None]
  - BACK PAIN [None]
